FAERS Safety Report 6270897-1 (Version None)
Quarter: 2009Q3

REPORT INFORMATION
  Report Type: 
  Country: None (occurrence: None)
  Receive Date: 20090716
  Receipt Date: 20090710
  Transmission Date: 20100115
  Serious: Yes (Hospitalization)
  Sender: FDA-Public Use
  Company Number: KR-WYE-H10012209

PATIENT
  Sex: Male
  Weight: 72 kg

DRUGS (14)
  1. TEMSIROLIMUS [Suspect]
     Indication: METASTATIC RENAL CELL CARCINOMA
     Route: 042
     Dates: start: 20081219
  2. NORVASC [Concomitant]
     Indication: HYPERTENSION
     Dosage: NOT PROVIDED
     Dates: start: 20090117
  3. ATACAND [Concomitant]
     Indication: HYPERTENSION
     Dosage: NOT PROVIDED
     Dates: start: 20090203
  4. PHENIRAMINE [Concomitant]
     Indication: PROPHYLAXIS
     Dosage: NOT PROVIDED
     Dates: start: 20081219
  5. SIMVASTATIN [Concomitant]
     Indication: HYPERTRIGLYCERIDAEMIA
     Dosage: NOT PROVIDED
     Dates: start: 20090215
  6. HYDROCORTISONE [Concomitant]
     Indication: FOLLICULITIS
     Dosage: NOT PROVIDED
     Dates: start: 20090319
  7. ALLEGRA [Concomitant]
     Indication: PRURITUS
     Dosage: NOT SPECIFIED
     Dates: start: 20090319
  8. BACTROBAN [Concomitant]
     Dosage: NOT PROVIDED
     Dates: start: 20090319
  9. MEGACE [Concomitant]
     Indication: DECREASED APPETITE
     Dosage: NOT SPECIFIED
     Dates: start: 20090423
  10. CELESTONE [Concomitant]
     Indication: RASH
     Dosage: NOT PROVIDED
     Dates: start: 20090120
  11. CELESTONE [Concomitant]
     Indication: PRURITUS
  12. LACTICARE [Concomitant]
     Indication: FOLLICULITIS
     Dosage: NOT PROVIDED
     Dates: start: 20090319
  13. BEVACIZUMAB [Suspect]
     Indication: METASTATIC RENAL CELL CARCINOMA
     Route: 042
     Dates: start: 20081219
  14. GEMFIBROZIL [Concomitant]
     Indication: HYPERTRIGLYCERIDAEMIA
     Dosage: NOT PROVIDED
     Dates: start: 20090312

REACTIONS (1)
  - ILEUS PARALYTIC [None]
